FAERS Safety Report 4771234-1 (Version None)
Quarter: 2005Q3

REPORT INFORMATION
  Report Type: 
  Country: None (occurrence: None)
  Receive Date: 20050912
  Receipt Date: 20050624
  Transmission Date: 20060218
  Serious: No
  Sender: FDA-Public Use
  Company Number: 2005-01365

PATIENT
  Age: 81 Year
  Sex: Female
  Weight: 66.7 kg

DRUGS (7)
  1. VELCADE [Suspect]
     Indication: MULTIPLE MYELOMA
     Dosage: 1.70 MG; 2.00 MG
     Dates: start: 20050614, end: 20050614
  2. VELCADE [Suspect]
     Indication: MULTIPLE MYELOMA
     Dosage: 1.70 MG; 2.00 MG
     Dates: start: 20050617
  3. LIPITOR [Concomitant]
  4. ATENOLOL [Concomitant]
  5. EVISTA [Concomitant]
  6. SYNTHROID [Concomitant]
  7. GLUCOPHAGE ^UNS^ (METFORMIN HYDROCHLORIDE) [Concomitant]

REACTIONS (2)
  - PETECHIAE [None]
  - PLATELET COUNT DECREASED [None]
